FAERS Safety Report 8113591-4 (Version None)
Quarter: 2012Q1

REPORT INFORMATION
  Report Type: 
  Country: None (occurrence: None)
  Receive Date: 20120131
  Receipt Date: 20120124
  Transmission Date: 20120608
  Serious: Yes (Hospitalization, Other)
  Sender: FDA-Public Use
  Company Number: IMP_05722_2012

PATIENT
  Age: 60 Year
  Sex: Female

DRUGS (1)
  1. METFORMIN HCL [Suspect]
     Indication: PRODUCT USED FOR UNKNOWN INDICATION
     Dosage: 850 MG, FREQUENCY
     Dates: start: 20090101, end: 20091201

REACTIONS (2)
  - TREATMENT NONCOMPLIANCE [None]
  - LEUKOCYTOCLASTIC VASCULITIS [None]
